FAERS Safety Report 17099305 (Version 1)
Quarter: 2019Q4

REPORT INFORMATION
  Report Type: Spontaneous
  Country: US (occurrence: US)
  Receive Date: 20191202
  Receipt Date: 20191202
  Transmission Date: 20200122
  Serious: No
  Sender: FDA-Public Use
  Company Number: US-PFIZER INC-2019515779

PATIENT
  Age: 72 Year
  Sex: Female

DRUGS (2)
  1. BOSULIF [Suspect]
     Active Substance: BOSUTINIB MONOHYDRATE
     Indication: CHRONIC MYELOID LEUKAEMIA
     Dosage: UNK
  2. BOSULIF [Suspect]
     Active Substance: BOSUTINIB MONOHYDRATE
     Dosage: 200 MG, DAILY (TAKING 2 PILLS DAILY)
     Dates: start: 20180809

REACTIONS (5)
  - Diarrhoea [Recovered/Resolved]
  - Drug intolerance [Unknown]
  - Fatigue [Unknown]
  - Abdominal pain [Unknown]
  - White blood cell count decreased [Recovering/Resolving]
